FAERS Safety Report 21093168 (Version 2)
Quarter: 2022Q3

REPORT INFORMATION
  Report Type: Spontaneous
  Country: US (occurrence: US)
  Receive Date: 20220718
  Receipt Date: 20220728
  Transmission Date: 20221027
  Serious: Yes (Death, Life-Threatening, Hospitalization, Other)
  Sender: FDA-Public Use
  Company Number: US-AUROBINDO-AUR-APL-2022-027605

PATIENT
  Age: 11 Year
  Sex: Female

DRUGS (1)
  1. AMOXICILLIN\CLAVULANIC ACID [Suspect]
     Active Substance: AMOXICILLIN\CLAVULANIC ACID
     Indication: Pneumonia
     Dosage: UNK
     Route: 065

REACTIONS (7)
  - Lactic acidosis [Fatal]
  - Diarrhoea [Fatal]
  - Dehydration [Fatal]
  - Hypophosphataemia [Fatal]
  - Metabolic acidosis [Fatal]
  - Respiratory failure [Fatal]
  - Neurological decompensation [Fatal]
